FAERS Safety Report 14144612 (Version 2)
Quarter: 2018Q1

REPORT INFORMATION
  Report Type: Report from Study
  Country: IT (occurrence: IT)
  Receive Date: 20171031
  Receipt Date: 20180217
  Transmission Date: 20180508
  Serious: Yes (Hospitalization)
  Sender: FDA-Public Use
  Company Number: IT-ACCORD-060376

PATIENT
  Age: 43 Year
  Sex: Female

DRUGS (3)
  1. PROZIN  - ISTITUTO LUSO FARMACO D ITALIA S.P.A. [Suspect]
     Active Substance: CHLORPROMAZINE HYDROCHLORIDE
     Dosage: STRENGTH - 25 MG
     Route: 048
     Dates: start: 20170716, end: 20170716
  2. LOBIVON - A. MENARINI INDUSTRIE FARMACEUTICHE RIUNITE S.R.L. [Suspect]
     Active Substance: NEBIVOLOL HYDROCHLORIDE
     Dosage: STRENGTH - 5 MG
     Route: 048
     Dates: start: 20170716, end: 20170716
  3. RAMIPRIL. [Suspect]
     Active Substance: RAMIPRIL
     Route: 048
     Dates: start: 20170716, end: 20170716

REACTIONS (8)
  - Bradycardia [Unknown]
  - Hypotension [Unknown]
  - Overdose [Unknown]
  - Miosis [Unknown]
  - Sopor [Unknown]
  - Coma scale abnormal [Unknown]
  - Intentional self-injury [Unknown]
  - Drug abuse [Unknown]

NARRATIVE: CASE EVENT DATE: 20170716
